FAERS Safety Report 9684515 (Version 1)
Quarter: 2013Q4

REPORT INFORMATION
  Report Type: Spontaneous
  Country: FR (occurrence: None)
  Receive Date: 20131108
  Receipt Date: 20131108
  Transmission Date: 20140711
  Serious: Yes (Other)
  Sender: FDA-Public Use
  Company Number: 7246281

PATIENT
  Age: 35 Year
  Sex: Female

DRUGS (3)
  1. LEVOTHYROX [Suspect]
     Indication: PRODUCT USED FOR UNKNOWN INDICATION
     Dosage: 175 MCG (175 MCG, 1 IN 1 D) ORAL?DURING ALL PREGNANCY
     Route: 048
  2. DEPAKINE [Suspect]
     Indication: PRODUCT USED FOR UNKNOWN INDICATION
     Dosage: 2 DF ( 2 DF, 1 IN 1 D)
     Route: 048
  3. FOLIC ACID (FOLIC ACID) (FOLIC ACID) [Concomitant]

REACTIONS (3)
  - Pre-eclampsia [None]
  - Maternal exposure during pregnancy [None]
  - Caesarean section [None]
